FAERS Safety Report 5865847-3 (Version None)
Quarter: 2008Q3

REPORT INFORMATION
  Report Type: 
  Country: None (occurrence: None)
  Receive Date: 20080829
  Receipt Date: 20080819
  Transmission Date: 20090109
  Serious: Yes (Other)
  Sender: FDA-Public Use
  Company Number: US-ELI_LILLY_AND_COMPANY-US200808003746

PATIENT
  Sex: Female

DRUGS (1)
  1. FORTEO [Suspect]
     Dosage: UNK, UNK
     Dates: start: 20080301

REACTIONS (3)
  - LEUKAEMIA RECURRENT [None]
  - PHARMACEUTICAL PRODUCT COMPLAINT [None]
  - SPLENOMEGALY [None]
